APPROVED DRUG PRODUCT: SEVELAMER CARBONATE
Active Ingredient: SEVELAMER CARBONATE
Strength: 2.4GM/PACKET
Dosage Form/Route: FOR SUSPENSION;ORAL
Application: A206234 | Product #002
Applicant: INVAGEN PHARMACEUTICALS INC
Approved: Jul 12, 2024 | RLD: No | RS: No | Type: DISCN